FAERS Safety Report 23977365 (Version 1)
Quarter: 2024Q2

REPORT INFORMATION
  Report Type: Spontaneous
  Country: US (occurrence: US)
  Receive Date: 20240614
  Receipt Date: 20240614
  Transmission Date: 20240715
  Serious: No
  Sender: FDA-Public Use
  Company Number: US-LANTHEUS MEDICAL IMAGING-LMI-2024-00581

PATIENT
  Age: 79 Year
  Sex: Male

DRUGS (1)
  1. PYLARIFY [Suspect]
     Active Substance: PIFLUFOLASTAT F-18
     Indication: Positron emission tomogram
     Dosage: 9.5 MILLICURIE
     Route: 042
     Dates: start: 20221207, end: 20221207

REACTIONS (1)
  - Exposure to radiation [Unknown]

NARRATIVE: CASE EVENT DATE: 20221207
